FAERS Safety Report 26183249 (Version 1)
Quarter: 2025Q4

REPORT INFORMATION
  Report Type: Spontaneous
  Country: EU (occurrence: EU)
  Receive Date: 20251221
  Receipt Date: 20251221
  Transmission Date: 20260118
  Serious: Yes (Other)
  Sender: AUROBINDO
  Company Number: EU-ABBVIE-6573781

PATIENT
  Age: 75 Year
  Sex: Male

DRUGS (3)
  1. OXYCODONE [Suspect]
     Active Substance: OXYCODONE
     Indication: Product used for unknown indication
     Dosage: UNK
     Route: 065
  2. FOSCARBIDOPA\FOSLEVODOPA [Suspect]
     Active Substance: FOSCARBIDOPA\FOSLEVODOPA
     Indication: Parkinson^s disease
     Dosage: UNK (ALST ADMIN DATE WAS 2025)
  3. FOSCARBIDOPA\FOSLEVODOPA [Suspect]
     Active Substance: FOSCARBIDOPA\FOSLEVODOPA
     Dosage: UNK (BASE 0.52 INCREASED BY 0.02 ML/H TO 0.54 LOW 0.41 EXTRA DOSE 0.30 LOADING 1.40 TOTAL ML 24H 11.92 MLFIRST ADMIN DATE WAS 2025)

REACTIONS (8)
  - Immobile [Not Recovered/Not Resolved]
  - Knee operation [Recovered/Resolved]
  - Hallucination [Recovered/Resolved]
  - Muscle rigidity [Not Recovered/Not Resolved]
  - On and off phenomenon [Not Recovered/Not Resolved]
  - Confusional state [Unknown]
  - Infusion site bruising [Not Recovered/Not Resolved]
  - Therapeutic product effect incomplete [Not Recovered/Not Resolved]

NARRATIVE: CASE EVENT DATE: 20250101
